FAERS Safety Report 15907008 (Version 3)
Quarter: 2019Q2

REPORT INFORMATION
  Report Type: Spontaneous
  Country: US (occurrence: US)
  Receive Date: 20190204
  Receipt Date: 20190606
  Transmission Date: 20190711
  Serious: No
  Sender: FDA-Public Use
  Company Number: US-PFIZER INC-2019051095

PATIENT
  Age: 78 Year
  Sex: Male

DRUGS (6)
  1. LOVASTATIN. [Suspect]
     Active Substance: LOVASTATIN
     Indication: HYPERTENSION
  2. QUINAPRIL. [Suspect]
     Active Substance: QUINAPRIL
     Indication: HYPERTENSION
  3. QUINAPRIL. [Suspect]
     Active Substance: QUINAPRIL
     Indication: BLOOD CHOLESTEROL INCREASED
     Dosage: UNK
     Route: 048
  4. LOVASTATIN. [Suspect]
     Active Substance: LOVASTATIN
     Indication: BLOOD CHOLESTEROL INCREASED
     Dosage: UNK
     Route: 048
  5. SIMVASTATIN. [Suspect]
     Active Substance: SIMVASTATIN
     Indication: BLOOD CHOLESTEROL INCREASED
     Dosage: UNK
  6. SIMVASTATIN. [Suspect]
     Active Substance: SIMVASTATIN
     Indication: HYPERTENSION

REACTIONS (2)
  - Cough [Recovering/Resolving]
  - Drug hypersensitivity [Recovered/Resolved]
